FAERS Safety Report 13957127 (Version 2)
Quarter: 2017Q4

REPORT INFORMATION
  Report Type: Report from Study
  Country: US (occurrence: US)
  Receive Date: 20170911
  Receipt Date: 20171002
  Transmission Date: 20180320
  Serious: Yes (Hospitalization)
  Sender: FDA-Public Use
  Company Number: US-GILEAD-2017-0292454

PATIENT
  Age: 40 Year
  Sex: Female

DRUGS (3)
  1. AZTREONAM LYSINE [Suspect]
     Active Substance: AZTREONAM LYSINE
     Indication: CYSTIC FIBROSIS LUNG
     Dosage: 75 MG, UNK
     Route: 055
     Dates: start: 20140505, end: 20140820
  2. AZTREONAM LYSINE [Suspect]
     Active Substance: AZTREONAM LYSINE
     Indication: CYSTIC FIBROSIS
  3. AZTREONAM LYSINE [Suspect]
     Active Substance: AZTREONAM LYSINE
     Indication: PSEUDOMONAS INFECTION

REACTIONS (9)
  - Oxygen saturation decreased [Unknown]
  - Fatigue [Unknown]
  - Productive cough [Unknown]
  - Feeding disorder [Unknown]
  - Diarrhoea [Unknown]
  - Cough [Unknown]
  - Condition aggravated [Unknown]
  - Pyrexia [Unknown]
  - Vomiting [Unknown]
